FAERS Safety Report 20659357 (Version 1)
Quarter: 2022Q1

REPORT INFORMATION
  Report Type: Spontaneous
  Country: JP (occurrence: JP)
  Receive Date: 20220331
  Receipt Date: 20220331
  Transmission Date: 20220424
  Serious: Yes (Hospitalization)
  Sender: FDA-Public Use
  Company Number: JP-NOVARTISPH-NVSJ2022JP005253

PATIENT
  Age: 93 Year
  Sex: Female

DRUGS (2)
  1. NEVANAC [Suspect]
     Active Substance: NEPAFENAC
     Indication: Inflammation
     Dosage: UNK
     Route: 047
     Dates: start: 202105
  2. NEVANAC [Suspect]
     Active Substance: NEPAFENAC
     Dosage: UNK
     Route: 047

REACTIONS (2)
  - Dehydration [Unknown]
  - Urinary tract infection [Unknown]
